FAERS Safety Report 12732113 (Version 1)
Quarter: 2016Q3

REPORT INFORMATION
  Report Type: Spontaneous
  Country: US (occurrence: US)
  Receive Date: 20160909
  Receipt Date: 20160909
  Transmission Date: 20161109
  Serious: Yes (Other)
  Sender: FDA-Public Use
  Company Number: None

PATIENT
  Sex: Female

DRUGS (1)
  1. JOHNSONS BABY POWDER [Suspect]
     Active Substance: TALC
     Route: 061

REACTIONS (1)
  - Ovarian cancer [None]
